FAERS Safety Report 6386956-9 (Version None)
Quarter: 2009Q4

REPORT INFORMATION
  Report Type: 
  Country: None (occurrence: None)
  Receive Date: 20091002
  Receipt Date: 20090928
  Transmission Date: 20100525
  Serious: Yes (Death, Hospitalization)
  Sender: FDA-Public Use
  Company Number: US-ELI_LILLY_AND_COMPANY-US200908000488

PATIENT
  Sex: Male
  Weight: 87.075 kg

DRUGS (5)
  1. PEMETREXED [Suspect]
     Indication: NON-SMALL CELL LUNG CANCER
     Dosage: 500 MG/M2, OTHER
     Route: 042
     Dates: start: 20090609, end: 20090706
  2. GEMCITABINE HCL [Suspect]
     Indication: NON-SMALL CELL LUNG CANCER
     Dosage: 1500 MG/M2, OTHER
     Route: 042
     Dates: start: 20090609, end: 20090706
  3. BEVACIZUMAB [Suspect]
     Indication: NON-SMALL CELL LUNG CANCER
     Dosage: 10 MG/KG, OTHER
     Route: 042
     Dates: start: 20090609, end: 20090706
  4. FOLIC ACID [Concomitant]
     Dates: start: 20090602
  5. VITAMIN B-12 [Concomitant]
     Dates: start: 20090602

REACTIONS (1)
  - FAILURE TO THRIVE [None]
